FAERS Safety Report 4963772-3 (Version None)
Quarter: 2006Q1

REPORT INFORMATION
  Report Type: 
  Country: None (occurrence: None)
  Receive Date: 20060330
  Receipt Date: 20060321
  Transmission Date: 20060701
  Serious: Yes (Death, Hospitalization)
  Sender: FDA-Public Use
  Company Number: 2006-03-1237

PATIENT
  Age: 53 Year
  Sex: Female

DRUGS (1)
  1. TEMODAL [Suspect]
     Indication: GLIOMA
     Dosage: 200 MG/M2 ORAL
     Route: 048

REACTIONS (4)
  - CYST [None]
  - LEUKOPENIA [None]
  - NECROTISING FASCIITIS [None]
  - NEUTROPENIA [None]
